FAERS Safety Report 6727654-9 (Version None)
Quarter: 2010Q2

REPORT INFORMATION
  Report Type: 
  Country: None (occurrence: None)
  Receive Date: 20100512
  Receipt Date: 20091014
  Transmission Date: 20101027
  Serious: Yes (Disabling)
  Sender: FDA-Public Use
  Company Number: 2008BI029630

PATIENT
  Age: 43 Year
  Sex: Male

DRUGS (14)
  1. ZEVALIN [Suspect]
     Indication: FOLLICLE CENTRE LYMPHOMA, FOLLICULAR GRADE I, II, III
     Dosage: 13.2 MBQ/KG;1X;IV
     Route: 042
     Dates: start: 20080917, end: 20080924
  2. RITUXIMAB [Concomitant]
  3. AMARYL [Concomitant]
  4. VOGIBOSE [Concomitant]
  5. LIPITOR [Concomitant]
  6. ULCERLMIN [Concomitant]
  7. SOTIUM BICARBONATE [Concomitant]
  8. ALSOITOL [Concomitant]
  9. ANALGESICS [Concomitant]
  10. ANTIPYRETICS [Concomitant]
  11. DEXAMETHASONE [Concomitant]
  12. ETOPOSIDE [Concomitant]
  13. IFOSFAMIDE [Concomitant]
  14. CARBOPLATIN [Concomitant]

REACTIONS (2)
  - HEPATIC FUNCTION ABNORMAL [None]
  - PANCYTOPENIA [None]
